FAERS Safety Report 5121902-7 (Version None)
Quarter: 2006Q4

REPORT INFORMATION
  Report Type: 
  Country: None (occurrence: None)
  Receive Date: 20061006
  Receipt Date: 20060928
  Transmission Date: 20070319
  Serious: Yes (Hospitalization)
  Sender: FDA-Public Use
  Company Number: FR-MERCK-0609FRA00082

PATIENT
  Age: 69 Year
  Sex: Male

DRUGS (2)
  1. PRIMAXIN [Suspect]
     Indication: PNEUMONIA
     Route: 042
     Dates: start: 20060730, end: 20060814
  2. PRIMAXIN [Suspect]
     Route: 042
     Dates: start: 20060601, end: 20060701

REACTIONS (3)
  - DERMATITIS EXFOLIATIVE [None]
  - EOSINOPHILIA [None]
  - PYREXIA [None]
